FAERS Safety Report 12694573 (Version 1)
Quarter: 2016Q3

REPORT INFORMATION
  Report Type: Report from Study
  Country: MX (occurrence: MX)
  Receive Date: 20160829
  Receipt Date: 20160829
  Transmission Date: 20161109
  Serious: Yes (Death, Other)
  Sender: FDA-Public Use
  Company Number: PHHY2016MX118111

PATIENT
  Sex: Male

DRUGS (1)
  1. AFINITOR [Suspect]
     Active Substance: EVEROLIMUS
     Indication: BRAIN NEOPLASM
     Dosage: 1 DF, QD
     Route: 048
     Dates: start: 201602

REACTIONS (5)
  - Abdominal pain [Unknown]
  - Metastasis [Unknown]
  - Post procedural complication [Fatal]
  - Dehydration [Not Recovered/Not Resolved]
  - Product use issue [Unknown]
